FAERS Safety Report 21204848 (Version 1)
Quarter: 2022Q3

REPORT INFORMATION
  Report Type: Spontaneous
  Country: US (occurrence: US)
  Receive Date: 20220812
  Receipt Date: 20220812
  Transmission Date: 20221027
  Serious: No
  Sender: FDA-Public Use
  Company Number: US-ALLERGAN-2216880US

PATIENT
  Sex: Female

DRUGS (2)
  1. VANIQA [Suspect]
     Active Substance: EFLORNITHINE HYDROCHLORIDE
     Indication: Hair growth abnormal
     Dosage: 45 G
     Dates: start: 20220507
  2. Multiple other hair removal products [Concomitant]
     Indication: Hair growth abnormal

REACTIONS (4)
  - Skin exfoliation [Not Recovered/Not Resolved]
  - Malaise [Unknown]
  - Drug ineffective [Unknown]
  - Product label issue [Unknown]
